FAERS Safety Report 16355048 (Version 1)
Quarter: 2019Q2

REPORT INFORMATION
  Report Type: Spontaneous
  Country: JP (occurrence: JP)
  Receive Date: 20190524
  Receipt Date: 20190524
  Transmission Date: 20190711
  Serious: Yes (Other)
  Sender: FDA-Public Use
  Company Number: JP-009507513-1811JPN000729J

PATIENT
  Age: 48 Year
  Sex: Male

DRUGS (2)
  1. BRIDION [Suspect]
     Active Substance: SUGAMMADEX
     Dosage: 200 MILLIGRAM
     Route: 041
  2. BRIDION [Suspect]
     Active Substance: SUGAMMADEX
     Indication: NEUROMUSCULAR BLOCKADE REVERSAL
     Dosage: 200 MILLIGRAM, QD
     Route: 042

REACTIONS (6)
  - Respiratory arrest [Unknown]
  - Anaphylactic reaction [Unknown]
  - Blood pressure increased [Unknown]
  - Erythema [Recovering/Resolving]
  - Gaze palsy [Unknown]
  - Recurrence of neuromuscular blockade [Recovered/Resolved]
